FAERS Safety Report 6066103-3 (Version None)
Quarter: 2009Q1

REPORT INFORMATION
  Report Type: 
  Country: None (occurrence: None)
  Receive Date: 20090130
  Receipt Date: 20090120
  Transmission Date: 20090719
  Serious: Yes (Life-Threatening, Hospitalization)
  Sender: FDA-Public Use
  Company Number: 2008-03412

PATIENT
  Age: 59 Year
  Sex: Female
  Weight: 54.3 kg

DRUGS (2)
  1. VELCADE [Suspect]
     Indication: MULTIPLE MYELOMA
     Dosage: 1.3 MG/M2, INTRAVENOUS
     Route: 042
     Dates: start: 20080909, end: 20080912
  2. SOLONDO [Concomitant]

REACTIONS (9)
  - ACTIVITIES OF DAILY LIVING IMPAIRED [None]
  - ASPIRATION [None]
  - GAIT DISTURBANCE [None]
  - NEUROPATHY PERIPHERAL [None]
  - PARALYSIS [None]
  - PERIPHERAL MOTOR NEUROPATHY [None]
  - PNEUMONIA [None]
  - SEPSIS [None]
  - STEM CELL TRANSPLANT [None]
